FAERS Safety Report 15709091 (Version 1)
Quarter: 2018Q4

REPORT INFORMATION
  Report Type: Spontaneous
  Country: DE (occurrence: DE)
  Receive Date: 20181211
  Receipt Date: 20181211
  Transmission Date: 20190205
  Serious: Yes (Hospitalization, Other)
  Sender: FDA-Public Use
  Company Number: DE-SA-2018SA311618

PATIENT
  Age: 35 Year
  Sex: Female
  Weight: 70 kg

DRUGS (8)
  1. URBASON [Suspect]
     Active Substance: METHYLPREDNISOLONE
     Dosage: 1000 MG
     Route: 042
     Dates: start: 20171016
  2. RANITIDINE. [Suspect]
     Active Substance: RANITIDINE
     Dosage: 150 MG
     Route: 048
     Dates: start: 20181106, end: 20181108
  3. FENISTIL [Concomitant]
     Active Substance: DIMETHINDENE
     Dosage: 4 MG
     Route: 048
     Dates: start: 20181106, end: 20181108
  4. LEMTRADA [Suspect]
     Active Substance: ALEMTUZUMAB
     Indication: RELAPSING-REMITTING MULTIPLE SCLEROSIS
     Dosage: 12 MG
     Route: 041
     Dates: start: 20171016
  5. RANITIDINE. [Suspect]
     Active Substance: RANITIDINE
     Dosage: 150 MG
     Route: 048
     Dates: start: 20171016
  6. URBASON [Suspect]
     Active Substance: METHYLPREDNISOLONE
     Dosage: 1000 MG
     Route: 041
     Dates: start: 20181106, end: 20181108
  7. ACICLOVIR [Concomitant]
     Active Substance: ACYCLOVIR
     Dosage: 200 MG
     Route: 048
     Dates: end: 20181106
  8. LEMTRADA [Suspect]
     Active Substance: ALEMTUZUMAB
     Dosage: 12 MG, QD
     Route: 041
     Dates: start: 20181106, end: 20181108

REACTIONS (1)
  - Sinus bradycardia [Recovered/Resolved]

NARRATIVE: CASE EVENT DATE: 20181108
